FAERS Safety Report 10024579 (Version 1)
Quarter: 2014Q1

REPORT INFORMATION
  Report Type: Spontaneous
  Country: CA (occurrence: CA)
  Receive Date: 20140320
  Receipt Date: 20140320
  Transmission Date: 20141002
  Serious: Yes (Other)
  Sender: FDA-Public Use
  Company Number: CA-ABBVIE-14P-028-1214208-00

PATIENT
  Age: 15 Year
  Sex: Female

DRUGS (1)
  1. BIAXIN XL [Suspect]
     Indication: SINUSITIS
     Dosage: 1000 MILLIGRAM; 2 TABLETS DAILY
     Route: 048
     Dates: start: 20140307

REACTIONS (2)
  - Fall [Recovered/Resolved]
  - Loss of consciousness [Recovered/Resolved]
